FAERS Safety Report 18490880 (Version 3)
Quarter: 2021Q4

REPORT INFORMATION
  Report Type: Spontaneous
  Country: JP (occurrence: JP)
  Receive Date: 20201111
  Receipt Date: 20211025
  Transmission Date: 20220304
  Serious: Yes (Death, Hospitalization, Other)
  Sender: FDA-Public Use
  Company Number: JP-MSD-M2020-23687

PATIENT
  Age: 78 Year
  Sex: Male
  Weight: 49 kg

DRUGS (1)
  1. KEYTRUDA [Suspect]
     Active Substance: PEMBROLIZUMAB
     Indication: Transitional cell carcinoma
     Dosage: 200 MILLIGRAM, Q3W
     Route: 041
     Dates: start: 20200402, end: 20200824

REACTIONS (2)
  - Interstitial lung disease [Fatal]
  - Pyelonephritis [Unknown]

NARRATIVE: CASE EVENT DATE: 20200101
